FAERS Safety Report 21588211 (Version 3)
Quarter: 2023Q1

REPORT INFORMATION
  Report Type: Spontaneous
  Country: JP (occurrence: JP)
  Receive Date: 20221114
  Receipt Date: 20230321
  Transmission Date: 20230418
  Serious: Yes (Other)
  Sender: FDA-Public Use
  Company Number: JP-002147023-NVSJ2022JP100374

PATIENT
  Age: 42 Year
  Sex: Male
  Weight: 63 kg

DRUGS (11)
  1. XOLAIR [Suspect]
     Active Substance: OMALIZUMAB
     Indication: Urticaria
     Dosage: UNK
     Route: 058
     Dates: start: 20221026, end: 20221026
  2. PREDONINE [Concomitant]
     Active Substance: PREDNISOLONE
     Indication: Urticaria
     Dosage: 2.5 MG
     Dates: start: 20220914, end: 20220921
  3. PREDONINE [Concomitant]
     Active Substance: PREDNISOLONE
     Dosage: 22.5 MG
     Dates: start: 20221028, end: 20221028
  4. PREDONINE [Concomitant]
     Active Substance: PREDNISOLONE
     Dosage: 5 MG
     Dates: start: 20221031
  5. PREDONINE [Concomitant]
     Active Substance: PREDNISOLONE
     Dosage: 2.5 MG, QD
     Dates: start: 20221027
  6. PREDONINE [Concomitant]
     Active Substance: PREDNISOLONE
     Dosage: 20 MG, QD, IN THE MORNING
     Dates: start: 20221028, end: 20221030
  7. PREDONINE [Concomitant]
     Active Substance: PREDNISOLONE
     Dosage: 10 MG, QD, IN THE MORNING
     Dates: start: 20221031
  8. PREDONINE [Concomitant]
     Active Substance: PREDNISOLONE
     Dosage: 5 MG
     Dates: start: 20221223
  9. GASTER [Concomitant]
     Active Substance: FAMOTIDINE
     Indication: Gastrooesophageal reflux disease
     Dosage: 20 MG, BID, AFTER BREAKFAST AND BEFORE BEDTIME
     Dates: start: 20220914
  10. RUPAFIN [Concomitant]
     Active Substance: RUPATADINE FUMARATE
     Indication: Urticaria
     Dosage: 20 MG, QD, BEFORE BEDTIME
     Dates: start: 20220914
  11. TALION [Concomitant]
     Indication: Urticaria
     Dosage: 10 MG, BID, AFTER BREAKFAST AND DINNER
     Dates: start: 20221005

REACTIONS (4)
  - Enterocolitis [Unknown]
  - Diarrhoea [Recovered/Resolved]
  - Lymphocyte count decreased [Unknown]
  - Urticaria [Unknown]

NARRATIVE: CASE EVENT DATE: 20221027
